FAERS Safety Report 6043922-0 (Version None)
Quarter: 2009Q1

REPORT INFORMATION
  Report Type: 
  Country: None (occurrence: None)
  Receive Date: 20090120
  Receipt Date: 20090113
  Transmission Date: 20090719
  Serious: Yes (Other)
  Sender: FDA-Public Use
  Company Number: US-ASTRAZENECA-2008UW27226

PATIENT
  Age: 39 Year
  Sex: Male

DRUGS (3)
  1. SYMBICORT [Suspect]
     Indication: CHRONIC OBSTRUCTIVE PULMONARY DISEASE
     Dosage: 160/4.5 UG
     Route: 055
     Dates: start: 20071023, end: 20080129
  2. NEXIUM [Concomitant]
     Indication: GASTROOESOPHAGEAL REFLUX DISEASE
     Route: 048
     Dates: start: 20061020
  3. PERCOCET [Concomitant]
     Indication: BACK PAIN
     Route: 048
     Dates: start: 20070707

REACTIONS (3)
  - GLOSSITIS [None]
  - OESOPHAGITIS [None]
  - PHARYNGITIS [None]
